FAERS Safety Report 5987465-9 (Version None)
Quarter: 2008Q4

REPORT INFORMATION
  Report Type: 
  Country: None (occurrence: None)
  Receive Date: 20081128
  Receipt Date: 20080407
  Transmission Date: 20090506
  Serious: Yes (Other)
  Sender: FDA-Public Use
  Company Number: 310029J08USA

PATIENT
  Age: 36 Year
  Sex: Female
  Weight: 59.8748 kg

DRUGS (10)
  1. GONAL-F [Suspect]
     Indication: ASSISTED FERTILISATION
     Dosage: 225 IU : 150 IU
     Dates: start: 20070401, end: 20070501
  2. GONAL-F [Suspect]
     Indication: ASSISTED FERTILISATION
     Dosage: 225 IU : 150 IU
     Dates: start: 20080101
  3. LUPRON [Suspect]
     Indication: IN VITRO FERTILISATION
     Dosage: 5 IU
     Dates: start: 20070401, end: 20070501
  4. MENOPUR [Suspect]
     Indication: IN VITRO FERTILISATION
     Dosage: 75 IU
     Dates: start: 20070401, end: 20070501
  5. ESTRACE [Suspect]
     Dosage: 1 IN 1 DAYS, ORAL
     Route: 048
     Dates: start: 20070101, end: 20070701
  6. CHORIONIC GONADOTROPIN [Suspect]
     Indication: INFERTILITY
     Dosage: INTRAMUSCULAR
     Route: 030
     Dates: start: 20070501
  7. CHORIONIC GONADOTROPIN [Suspect]
     Indication: INFERTILITY
     Dosage: INTRAMUSCULAR
     Route: 030
     Dates: start: 20080404
  8. PROGESTERONE [Suspect]
     Dosage: 2 ML, 1 IN 1 DAYS
     Dates: start: 20070101, end: 20070701
  9. ASPIRIN [Concomitant]
  10. LOVENOX [Concomitant]

REACTIONS (3)
  - ABORTION SPONTANEOUS [None]
  - BREAST TENDERNESS [None]
  - OVARIAN CYST [None]
